FAERS Safety Report 8552450-X (Version None)
Quarter: 2012Q3

REPORT INFORMATION
  Report Type: 
  Country: None (occurrence: None)
  Receive Date: 20120731
  Receipt Date: 20120719
  Transmission Date: 20120928
  Serious: Yes (Congenital Anomaly)
  Sender: FDA-Public Use
  Company Number: CZ-SANOFI-AVENTIS-2012SA053564

PATIENT

DRUGS (2)
  1. APIDRA [Suspect]
     Route: 058
  2. LANTUS [Suspect]
     Route: 064

REACTIONS (5)
  - MACROSOMIA [None]
  - CONGENITAL ANOMALY [None]
  - HYPOTONIA [None]
  - PREMATURE BABY [None]
  - FOETAL EXPOSURE DURING PREGNANCY [None]
